FAERS Safety Report 9580440 (Version 1)
Quarter: 2013Q4

REPORT INFORMATION
  Report Type: Spontaneous
  Country: US (occurrence: None)
  Receive Date: 20131001
  Receipt Date: 20131001
  Transmission Date: 20140711
  Serious: Yes (Hospitalization)
  Sender: FDA-Public Use
  Company Number: None

PATIENT
  Age: 56 Year
  Sex: Male
  Weight: 96.9 kg

DRUGS (1)
  1. MORPHINE [Suspect]
     Indication: PAIN
     Route: 048
     Dates: start: 20130906, end: 20130915

REACTIONS (7)
  - Somnolence [None]
  - Asthenia [None]
  - Mental status changes [None]
  - Overdose [None]
  - Confusional state [None]
  - Sedation [None]
  - Respiratory depression [None]
